FAERS Safety Report 21767737 (Version 1)
Quarter: 2022Q4

REPORT INFORMATION
  Report Type: Report from Study
  Country: US (occurrence: US)
  Receive Date: 20221222
  Receipt Date: 20221222
  Transmission Date: 20230112
  Serious: Yes (Hospitalization)
  Sender: FDA-Public Use
  Company Number: US-MIRATI-MYG202203169

PATIENT
  Age: 51 Year
  Sex: Female
  Weight: 61.1 kg

DRUGS (3)
  1. ADAGRASIB [Suspect]
     Active Substance: ADAGRASIB
     Indication: Neoplasm
     Dosage: 600 MG, BID
     Route: 048
     Dates: end: 20221103
  2. ERBITUX [Suspect]
     Active Substance: CETUXIMAB
     Indication: Neoplasm
     Dosage: 500 MG/KG, BI-WEEKLY
     Route: 042
     Dates: start: 20221026, end: 20221026
  3. ZYPREXA [Concomitant]
     Active Substance: OLANZAPINE
     Indication: Nausea
     Dosage: 5 MG, AT BEDTIME
     Route: 048
     Dates: start: 20221102, end: 20221107

REACTIONS (2)
  - Asthenia [Recovered/Resolved with Sequelae]
  - Optic neuritis [Recovered/Resolved with Sequelae]

NARRATIVE: CASE EVENT DATE: 20221106
